FAERS Safety Report 16303447 (Version 1)
Quarter: 2019Q2

REPORT INFORMATION
  Report Type: Spontaneous
  Country: US (occurrence: US)
  Receive Date: 20190405
  Receipt Date: 20190405
  Transmission Date: 20190711
  Serious: No
  Sender: FDA-Public Use
  Company Number: None

PATIENT
  Age: 87 Year
  Sex: Male
  Weight: 81.65 kg

DRUGS (8)
  1. LOSARTAN. [Suspect]
     Active Substance: LOSARTAN
     Indication: HYPERTENSION
     Dosage: ?          QUANTITY:1;?
     Route: 048
     Dates: start: 2017, end: 2018
  2. TOPROL XL [Concomitant]
     Active Substance: METOPROLOL SUCCINATE
  3. PROTONIX [Concomitant]
     Active Substance: PANTOPRAZOLE SODIUM
  4. MULTIVIT [Concomitant]
     Active Substance: VITAMINS
  5. AMLODIPINE [Concomitant]
     Active Substance: AMLODIPINE BESYLATE
  6. VITAMIN B12 [Concomitant]
     Active Substance: CYANOCOBALAMIN
  7. OCCASIONAL TYLENOL (GENERIC) [Concomitant]
  8. PROSCAR [Concomitant]
     Active Substance: FINASTERIDE

REACTIONS (4)
  - Decreased appetite [None]
  - Abdominal pain upper [None]
  - Heart rate decreased [None]
  - Decreased activity [None]

NARRATIVE: CASE EVENT DATE: 2018
